FAERS Safety Report 26113742 (Version 2)
Quarter: 2025Q4

REPORT INFORMATION
  Report Type: Spontaneous
  Country: US (occurrence: US)
  Receive Date: 20251202
  Receipt Date: 20251231
  Transmission Date: 20260117
  Serious: No
  Sender: SANOFI AVENTIS
  Company Number: US-SA-2025SA359053

PATIENT
  Sex: Female
  Weight: 56.689 kg

DRUGS (8)
  1. DUPIXENT [Suspect]
     Active Substance: DUPILUMAB
     Indication: Nasal polyps
     Dosage: 300 MG, QOW
     Route: 058
  2. TIADYLT ER [Concomitant]
     Active Substance: DILTIAZEM HYDROCHLORIDE
  3. ELIQUIS [Concomitant]
     Active Substance: APIXABAN
  4. VITAMIN B12 [Concomitant]
     Active Substance: CYANOCOBALAMIN
  5. LEVOTHYROXINE SODIUM [Concomitant]
     Active Substance: LEVOTHYROXINE SODIUM
  6. GLUCOSAMINE [Concomitant]
     Active Substance: GLUCOSAMINE
  7. MAGNESIUM [Concomitant]
     Active Substance: MAGNESIUM
  8. VITAMIN D3 [Concomitant]
     Active Substance: CHOLECALCIFEROL

REACTIONS (2)
  - Drug hypersensitivity [Unknown]
  - Rash pruritic [Unknown]
